FAERS Safety Report 7811471-2 (Version None)
Quarter: 2011Q4

REPORT INFORMATION
  Report Type: 
  Country: None (occurrence: None)
  Receive Date: 20111013
  Receipt Date: 20111004
  Transmission Date: 20120403
  Serious: Yes (Other)
  Sender: FDA-Public Use
  Company Number: US-JNJFOC-20110804792

PATIENT
  Sex: Male

DRUGS (8)
  1. METOPROLOL TARTRATE [Concomitant]
     Indication: ANGINA PECTORIS
     Route: 065
  2. PEPCID AC [Suspect]
     Route: 048
  3. PEPCID AC [Suspect]
     Indication: ULCER
     Route: 048
     Dates: start: 19950101
  4. NORVASC [Concomitant]
     Indication: HYPERTENSION
     Route: 065
  5. COMADIN [Concomitant]
     Indication: CEREBROVASCULAR ACCIDENT PROPHYLAXIS
     Route: 065
  6. METOPROLOL TARTRATE [Concomitant]
     Indication: HYPERTENSION
     Route: 065
  7. DIGOXIN [Concomitant]
     Indication: CARDIAC FAILURE CONGESTIVE
     Route: 065
  8. ZOCOR [Concomitant]
     Route: 065

REACTIONS (4)
  - DUODENAL OBSTRUCTION [None]
  - APPARENT DEATH [None]
  - INCORRECT DRUG ADMINISTRATION DURATION [None]
  - GASTRIC DISORDER [None]
